FAERS Safety Report 7711631-5 (Version None)
Quarter: 2011Q3

REPORT INFORMATION
  Report Type: 
  Country: None (occurrence: None)
  Receive Date: 20110826
  Receipt Date: 20110610
  Transmission Date: 20111222
  Serious: No
  Sender: FDA-Public Use
  Company Number: US-BRISTOL-MYERS SQUIBB COMPANY-15823164

PATIENT
  Age: 84 Year
  Sex: Male
  Weight: 93 kg

DRUGS (3)
  1. ONGLYZA [Suspect]
  2. METFORMIN HCL [Concomitant]
  3. FUROSEMIDE [Concomitant]

REACTIONS (2)
  - POLLAKIURIA [None]
  - BLOOD CREATININE INCREASED [None]
